FAERS Safety Report 24029212 (Version 2)
Quarter: 2024Q3

REPORT INFORMATION
  Report Type: Report from Study
  Country: US (occurrence: US)
  Receive Date: 20240628
  Receipt Date: 20240720
  Transmission Date: 20241016
  Serious: Yes (Hospitalization)
  Sender: JAZZ
  Company Number: US-JAZZ PHARMACEUTICALS-2021-US-009183

PATIENT
  Age: 69 Year
  Sex: Female

DRUGS (11)
  1. XYWAV [Suspect]
     Active Substance: CALCIUM OXYBATE\MAGNESIUM OXYBATE\POTASSIUM OXYBATE\SODIUM OXYBATE
     Indication: Narcolepsy
     Dosage: 3 GRAM, BID
     Route: 048
     Dates: start: 202012, end: 202102
  2. XYWAV [Suspect]
     Active Substance: CALCIUM OXYBATE\MAGNESIUM OXYBATE\POTASSIUM OXYBATE\SODIUM OXYBATE
     Indication: Cataplexy
     Dosage: 4 GRAM
     Route: 048
     Dates: start: 202102
  3. XYWAV [Suspect]
     Active Substance: CALCIUM OXYBATE\MAGNESIUM OXYBATE\POTASSIUM OXYBATE\SODIUM OXYBATE
     Indication: Somnolence
     Dosage: UNK
  4. XYWAV [Suspect]
     Active Substance: CALCIUM OXYBATE\MAGNESIUM OXYBATE\POTASSIUM OXYBATE\SODIUM OXYBATE
     Dosage: UNK
  5. HYDROCHLOROTHIAZIDE [Suspect]
     Active Substance: HYDROCHLOROTHIAZIDE
     Indication: Hypertension
  6. ASPIRIN [Concomitant]
     Active Substance: ASPIRIN
     Dosage: UNK
     Dates: start: 20150928
  7. PAROXETINE HYDROCHLORIDE [Concomitant]
     Active Substance: PAROXETINE HYDROCHLORIDE\PAROXETINE HYDROCHLORIDE ANHYDROUS
     Dosage: UNK, QD
     Dates: start: 20150101
  8. ZETIA [Concomitant]
     Active Substance: EZETIMIBE
     Dosage: UNK, QD
     Dates: start: 20150101
  9. PRALUENT [Concomitant]
     Active Substance: ALIROCUMAB
     Dosage: PEN
     Dates: start: 20150921
  10. VITAMIN D NOS [Concomitant]
     Active Substance: CHOLECALCIFEROL\ERGOCALCIFEROL
     Dosage: 2000 UNIT SOFTGEL
     Dates: start: 20151222
  11. IBUPROFEN IB [Concomitant]
     Active Substance: IBUPROFEN
     Dosage: CAPLET
     Dates: start: 20151222

REACTIONS (10)
  - Hand deformity [Unknown]
  - Hypoaesthesia [Not Recovered/Not Resolved]
  - Feeling hot [Not Recovered/Not Resolved]
  - Muscle spasms [Recovered/Resolved]
  - Paraesthesia [Not Recovered/Not Resolved]
  - Diarrhoea [Recovering/Resolving]
  - Dizziness [Unknown]
  - Initial insomnia [Unknown]
  - Wrong technique in product usage process [Unknown]
  - Therapeutic product effect incomplete [Not Recovered/Not Resolved]

NARRATIVE: CASE EVENT DATE: 20210201
